FAERS Safety Report 6706844-5 (Version None)
Quarter: 2010Q2

REPORT INFORMATION
  Report Type: 
  Country: None (occurrence: None)
  Receive Date: 20100430
  Receipt Date: 20100423
  Transmission Date: 20101027
  Serious: No
  Sender: FDA-Public Use
  Company Number: DL2010-0347

PATIENT
  Age: 32 Year
  Sex: Female

DRUGS (2)
  1. MIFEPRISTONE (MIFEPREX) [Suspect]
     Indication: ABORTION INDUCED
     Dosage: 200 MG, ORAL
     Route: 048
     Dates: start: 20100331
  2. DOXYCYCLINE [Concomitant]

REACTIONS (4)
  - ABORTION INCOMPLETE [None]
  - ANAEMIA [None]
  - ASTHENIA [None]
  - HAEMORRHAGE [None]
